FAERS Safety Report 14783102 (Version 1)
Quarter: 2018Q2

REPORT INFORMATION
  Report Type: Report from Study
  Country: FR (occurrence: FR)
  Receive Date: 20180420
  Receipt Date: 20180420
  Transmission Date: 20180711
  Serious: Yes (Other)
  Sender: FDA-Public Use
  Company Number: PHHY2018FR067778

PATIENT
  Age: 58 Year
  Sex: Female
  Weight: 45 kg

DRUGS (4)
  1. LETROZOLE. [Suspect]
     Active Substance: LETROZOLE
     Indication: PRODUCT USED FOR UNKNOWN INDICATION
     Dosage: 2.5 MG, CYCLIC
     Route: 048
     Dates: start: 20180108, end: 20180319
  2. PALBOCICLIB [Suspect]
     Active Substance: PALBOCICLIB
     Dosage: 3 CYCLES AND 7250 MG
     Route: 048
  3. PALBOCICLIB [Suspect]
     Active Substance: PALBOCICLIB
     Indication: PRODUCT USED FOR UNKNOWN INDICATION
     Dosage: 125 MG, CYCLIC
     Route: 048
     Dates: start: 20180108, end: 20180319
  4. LETROZOLE. [Suspect]
     Active Substance: LETROZOLE
     Dosage: 3 CYCLES AND 180 MG
     Route: 048

REACTIONS (1)
  - Anaemia [Not Recovered/Not Resolved]

NARRATIVE: CASE EVENT DATE: 20180319
